FAERS Safety Report 9815422 (Version 2)
Quarter: 2014Q1

REPORT INFORMATION
  Report Type: Report from Study
  Country: US (occurrence: US)
  Receive Date: 20140114
  Receipt Date: 20140114
  Transmission Date: 20141002
  Serious: Yes (Hospitalization, Other)
  Sender: FDA-Public Use
  Company Number: US-ROCHE-772119

PATIENT
  Age: 17 Year
  Sex: Male

DRUGS (2)
  1. VISMODEGIB [Suspect]
     Indication: MEDULLOBLASTOMA
     Dosage: 85 MG/M2, QD
     Route: 048
  2. VALPROIC ACID [Concomitant]
     Indication: CONVULSION

REACTIONS (3)
  - Dizziness [Unknown]
  - Fatigue [Unknown]
  - Convulsion [Recovered/Resolved]
